FAERS Safety Report 19436862 (Version 1)
Quarter: 2021Q2

REPORT INFORMATION
  Report Type: Spontaneous
  Country: JP (occurrence: JP)
  Receive Date: 20210618
  Receipt Date: 20210618
  Transmission Date: 20210717
  Serious: Yes (Other)
  Sender: FDA-Public Use
  Company Number: JP-AMGEN-JPNSP2021093839

PATIENT
  Age: 8 Decade
  Sex: Female

DRUGS (13)
  1. DARBEPOETIN ALFA [Suspect]
     Active Substance: DARBEPOETIN ALFA
     Dosage: 90 MICROGRAM, QWK
     Route: 010
     Dates: start: 20210519
  2. DARBEPOETIN ALFA [Suspect]
     Active Substance: DARBEPOETIN ALFA
     Dosage: UNK
     Route: 010
  3. DUVROQ [Concomitant]
     Active Substance: DAPRODUSTAT
     Indication: NEPHROGENIC ANAEMIA
     Dosage: 4 MILLIGRAM
     Route: 048
     Dates: start: 20201111
  4. DUVROQ [Concomitant]
     Active Substance: DAPRODUSTAT
     Dosage: 10 MILLIGRAM
     Route: 048
     Dates: start: 20210410
  5. DUVROQ [Concomitant]
     Active Substance: DAPRODUSTAT
     Dosage: 8 MILLIGRAM, UNK
     Route: 048
     Dates: start: 20210317
  6. POLAPREZINC [Concomitant]
     Active Substance: POLAPREZINC
     Dosage: UNK
     Route: 048
  7. FOLIC ACID. [Concomitant]
     Active Substance: FOLIC ACID
     Dosage: UNK
     Route: 065
  8. DARBEPOETIN ALFA [Suspect]
     Active Substance: DARBEPOETIN ALFA
     Indication: NEPHROGENIC ANAEMIA
     Dosage: 120 MICROGRAM, QWK
     Route: 010
     Dates: start: 20201212, end: 20210122
  9. DUVROQ [Concomitant]
     Active Substance: DAPRODUSTAT
     Dosage: 6 MILLIGRAM
     Route: 048
     Dates: start: 20210217
  10. DARBEPOETIN ALFA [Suspect]
     Active Substance: DARBEPOETIN ALFA
     Dosage: 60 MICROGRAM
     Route: 010
     Dates: start: 20210507
  11. DARBEPOETIN ALFA [Suspect]
     Active Substance: DARBEPOETIN ALFA
     Dosage: 180 MICROGRAM, QWK
     Route: 010
     Dates: start: 20201010
  12. DUVROQ [Concomitant]
     Active Substance: DAPRODUSTAT
     Dosage: 12 MILLIGRAM
     Route: 048
     Dates: start: 20210519
  13. VITAMIN B12 [Concomitant]
     Active Substance: CYANOCOBALAMIN
     Dosage: UNK
     Route: 065

REACTIONS (1)
  - Myelodysplastic syndrome [Unknown]
